FAERS Safety Report 6608212-3 (Version None)
Quarter: 2010Q1

REPORT INFORMATION
  Report Type: 
  Country: None (occurrence: None)
  Receive Date: 20100301
  Receipt Date: 20100219
  Transmission Date: 20100710
  Serious: Yes (Death, Hospitalization)
  Sender: FDA-Public Use
  Company Number: JP-ROCHE-676708

PATIENT
  Age: 63 Year
  Sex: Female

DRUGS (19)
  1. VALGANCICLOVIR HCL [Suspect]
     Indication: CYTOMEGALOVIRUS ENTEROCOLITIS
     Route: 048
     Dates: start: 20080227, end: 20080329
  2. SULFAMETHOXAZOLE AND TRIMETHOPRIM [Suspect]
     Route: 048
     Dates: start: 20080201, end: 20080312
  3. KLARICID [Suspect]
     Indication: MYCOBACTERIUM AVIUM COMPLEX INFECTION
     Route: 048
     Dates: start: 20080219, end: 20080401
  4. CRAVIT [Suspect]
     Indication: MYCOBACTERIUM AVIUM COMPLEX INFECTION
     Route: 048
     Dates: start: 20080219, end: 20080330
  5. ETHAMBUTOL HYDROCHLORIDE [Suspect]
     Indication: MYCOBACTERIUM AVIUM COMPLEX INFECTION
     Dosage: DRUG REPORTED AS EBUTOL
     Route: 048
     Dates: start: 20080219, end: 20080409
  6. SULFADIAZINE [Suspect]
     Route: 065
     Dates: start: 20080312, end: 20080408
  7. DARAPRIM [Suspect]
     Route: 065
     Dates: start: 20080312, end: 20080408
  8. LEUCOVORIN CALCIUM [Suspect]
     Route: 065
     Dates: start: 20080312, end: 20080408
  9. EPIVIR [Suspect]
     Indication: HIV INFECTION
     Route: 048
     Dates: start: 20080326, end: 20080331
  10. ZERIT [Suspect]
     Indication: HIV INFECTION
     Route: 048
     Dates: start: 20080326, end: 20080331
  11. KALETRA [Suspect]
     Indication: HIV INFECTION
     Route: 048
     Dates: start: 20080326, end: 20080331
  12. PREDONINE [Suspect]
     Route: 065
     Dates: start: 20080327, end: 20080524
  13. ZITHROMAX [Suspect]
     Indication: MYCOBACTERIUM AVIUM COMPLEX INFECTION
     Route: 048
     Dates: start: 20080401, end: 20080409
  14. PREDNISOLONE [Concomitant]
     Dates: start: 20080125, end: 20080212
  15. PREDNISOLONE [Concomitant]
     Dates: start: 20080213, end: 20080222
  16. PREDNISOLONE [Concomitant]
     Dates: start: 20080223, end: 20080302
  17. PREDNISOLONE [Concomitant]
     Dates: start: 20080303, end: 20080309
  18. PREDNISOLONE [Concomitant]
     Dates: start: 20080310, end: 20080323
  19. PREDNISOLONE [Concomitant]
     Dates: start: 20080324, end: 20080326

REACTIONS (3)
  - ANAEMIA [None]
  - CENTRAL NERVOUS SYSTEM LYMPHOMA [None]
  - PLATELET COUNT DECREASED [None]
